FAERS Safety Report 13060078 (Version 6)
Quarter: 2018Q2

REPORT INFORMATION
  Report Type: Report from Study
  Country: None (occurrence: GB)
  Receive Date: 20161223
  Receipt Date: 20180611
  Transmission Date: 20180711
  Serious: Yes (Death, Hospitalization, Other)
  Sender: FDA-Public Use
  Company Number: GB-ABBVIE-16K-167-1820621-00

PATIENT
  Age: 86 Year
  Sex: Female

DRUGS (1)
  1. HUMIRA [Suspect]
     Active Substance: ADALIMUMAB
     Indication: RHEUMATOID ARTHRITIS
     Route: 058
     Dates: start: 20040114

REACTIONS (17)
  - Computerised tomogram abnormal [Unknown]
  - Haemoglobin increased [Unknown]
  - Lung neoplasm [Unknown]
  - Lymphadenopathy mediastinal [Unknown]
  - Fatigue [Unknown]
  - Malaise [Unknown]
  - Spinal disorder [Unknown]
  - Thirst [Unknown]
  - Syncope [Unknown]
  - Weight decreased [Unknown]
  - Metastatic neoplasm [Unknown]
  - Polyuria [Unknown]
  - Metastatic neoplasm [Fatal]
  - Mobility decreased [Unknown]
  - Pathological fracture [Unknown]
  - Pleural effusion [Unknown]
  - Metastases to liver [Unknown]

NARRATIVE: CASE EVENT DATE: 20161129
